FAERS Safety Report 8801438 (Version 1)
Quarter: 2012Q4

REPORT INFORMATION
  Report Type: 
  Country: TR (occurrence: TR)
  Receive Date: 20120921
  Receipt Date: 20120921
  Transmission Date: 20130627
  Serious: Yes (Other)
  Sender: FDA-Public Use
  Company Number: PHHY2012TR080263

PATIENT
  Age: 49 Year
  Sex: Male

DRUGS (8)
  1. CICLOSPORIN [Suspect]
     Indication: HEART TRANSPLANT
  2. PREDNISOLONE [Suspect]
  3. MYCOPHENOLATE MOFETIL [Suspect]
  4. VALACICLOVIR [Concomitant]
  5. NYSTATIN [Concomitant]
  6. OMEPRAZOLE [Concomitant]
  7. FUROSEMIDE [Concomitant]
  8. TRIMETHOPRIM SULFATE [Concomitant]

REACTIONS (10)
  - Dermatophytosis [Recovering/Resolving]
  - Erythema [Recovering/Resolving]
  - Papule [Recovering/Resolving]
  - Pruritus [Recovering/Resolving]
  - Skin lesion [Recovering/Resolving]
  - Hyperkeratosis [Recovering/Resolving]
  - Skin mass [Recovering/Resolving]
  - Kaposi^s sarcoma [Unknown]
  - Cryptococcal cutaneous infection [Unknown]
  - Immunosuppressant drug level increased [Unknown]
